FAERS Safety Report 10156725 (Version 1)
Quarter: 2014Q2

REPORT INFORMATION
  Report Type: Spontaneous
  Country: FR (occurrence: None)
  Receive Date: 20140505
  Receipt Date: 20140505
  Transmission Date: 20141212
  Serious: Yes (Other)
  Sender: FDA-Public Use
  Company Number: FK201401567

PATIENT
  Age: 4 Day
  Sex: 0

DRUGS (2)
  1. INTRALIPID 20% [Suspect]
     Indication: PARENTERAL NUTRITION
     Route: 042
     Dates: start: 20140407, end: 20140407
  2. PERFALGAN (PARACETAMOL) [Concomitant]

REACTIONS (4)
  - Medication error [None]
  - Metabolic acidosis [None]
  - Incorrect drug administration rate [None]
  - Incorrect dose administered [None]
